FAERS Safety Report 10229658 (Version 1)
Quarter: 2014Q2

REPORT INFORMATION
  Report Type: Spontaneous
  Country: US (occurrence: None)
  Receive Date: 20140610
  Receipt Date: 20140610
  Transmission Date: 20141212
  Serious: Yes (Hospitalization, Other)
  Sender: FDA-Public Use
  Company Number: None

PATIENT
  Age: 59 Year
  Sex: Female
  Weight: 53.07 kg

DRUGS (10)
  1. TAMIFLU [Suspect]
     Indication: PROPHYLAXIS
     Route: 048
     Dates: start: 20140425, end: 20140426
  2. ALLEGRA [Concomitant]
  3. XIXAL [Concomitant]
  4. CIMETIDINE [Concomitant]
  5. PEPICT [Concomitant]
  6. METHYLPREDNISOLONE [Concomitant]
  7. VIT C [Concomitant]
  8. VIT E [Concomitant]
  9. CALCIUM [Concomitant]
  10. B COMPLEX [Concomitant]

REACTIONS (10)
  - Feeling abnormal [None]
  - Drug hypersensitivity [None]
  - Heart rate abnormal [None]
  - Pain [None]
  - Weight decreased [None]
  - Unevaluable event [None]
  - Gastric disorder [None]
  - Blood glucose decreased [None]
  - Visual acuity reduced [None]
  - Skin exfoliation [None]
